FAERS Safety Report 18111791 (Version 1)
Quarter: 2020Q3

REPORT INFORMATION
  Report Type: Report from Study
  Country: None (occurrence: US)
  Receive Date: 20200804
  Receipt Date: 20200804
  Transmission Date: 20201103
  Serious: Yes (Other)
  Sender: FDA-Public Use
  Company Number: US-ABBVIE-20P-163-3410138-00

PATIENT
  Age: 77 Year
  Sex: Male
  Weight: 76.27 kg

DRUGS (2)
  1. VENCLEXTA [Suspect]
     Active Substance: VENETOCLAX
     Indication: ACUTE MYELOID LEUKAEMIA
     Dosage: 4 TABLET PER DAY
     Route: 048
     Dates: start: 20190707
  2. DECITABINE. [Concomitant]
     Active Substance: DECITABINE
     Indication: ACUTE MYELOID LEUKAEMIA

REACTIONS (4)
  - Abdominal hernia [Recovered/Resolved]
  - Constipation [Recovered/Resolved]
  - Hernia [Recovered/Resolved]
  - White blood cell count decreased [Recovering/Resolving]

NARRATIVE: CASE EVENT DATE: 2020
